FAERS Safety Report 8802904 (Version 2)
Quarter: 2012Q4

REPORT INFORMATION
  Report Type: Report from Study
  Country: JP (occurrence: JP)
  Receive Date: 20120924
  Receipt Date: 20121106
  Transmission Date: 20130627
  Serious: Yes (Other)
  Sender: FDA-Public Use
  Company Number: JP-VERTEX PHARMACEUTICAL INC.-2012-021559

PATIENT
  Age: 65 Year
  Sex: Female

DRUGS (13)
  1. VX-950 (TELAPREVIR) [Suspect]
     Indication: CHRONIC HEPATITIS C
     Dosage: 1500 mg, qd
     Route: 048
     Dates: start: 20120713, end: 20120816
  2. VX-950 (TELAPREVIR) [Suspect]
     Dosage: 1000 mg, qd
     Route: 048
     Dates: start: 20120817, end: 20120830
  3. RIBAVIRIN [Suspect]
     Indication: CHRONIC HEPATITIS C
     Dosage: 600 mg, qd
     Route: 048
     Dates: start: 20120713, end: 20120816
  4. RIBAVIRIN [Suspect]
     Dosage: 400 mg, qd
     Route: 048
     Dates: start: 20120817, end: 20120830
  5. RIBAVIRIN [Suspect]
     Dosage: 200 mg, qd
     Route: 048
     Dates: start: 20120914, end: 20120927
  6. RIBAVIRIN [Suspect]
     Dosage: 400 mg, qd
     Route: 048
     Dates: start: 20120928
  7. PEGINTERFERON ALFA-2B [Suspect]
     Indication: CHRONIC HEPATITIS C
     Dosage: 1.5 UNK, UNK
     Route: 058
     Dates: start: 20120713, end: 20120816
  8. PEGINTERFERON ALFA-2B [Suspect]
     Dosage: 1.2 UNK, UNK
     Route: 058
     Dates: start: 20120817, end: 20120823
  9. PEGINTERFERON ALFA-2B [Suspect]
     Dosage: .6 UNK, UNK
     Route: 058
     Dates: start: 20120824, end: 20120830
  10. PEGINTERFERON ALFA-2B [Suspect]
     Dosage: 0.6 UNK, UNK
     Route: 058
     Dates: start: 20120914, end: 20120920
  11. PEGINTERFERON ALFA-2B [Suspect]
     Dosage: 0.9 UNK, UNK
     Route: 058
     Dates: start: 20120921
  12. ALOSITOL [Concomitant]
     Dosage: 200 mg, UNK
     Route: 048
     Dates: start: 20120717
  13. ALLEGRA [Concomitant]
     Dosage: 120 mg, qd
     Route: 048
     Dates: start: 20120713

REACTIONS (5)
  - Renal disorder [Recovered/Resolved]
  - Haemoglobin decreased [Recovered/Resolved]
  - Hyperuricaemia [None]
  - Blood creatinine increased [None]
  - Anaemia [None]
